FAERS Safety Report 9841090 (Version 2)
Quarter: 2014Q1

REPORT INFORMATION
  Report Type: Spontaneous
  Country: BE (occurrence: BE)
  Receive Date: 20140124
  Receipt Date: 20140124
  Transmission Date: 20141002
  Serious: Yes (Hospitalization, Other)
  Sender: FDA-Public Use
  Company Number: BE-PFIZER INC-2013353125

PATIENT
  Age: 74 Year
  Sex: Male
  Weight: 166 kg

DRUGS (8)
  1. XALKORI [Suspect]
     Indication: LUNG NEOPLASM MALIGNANT
     Dosage: 250 MG, 2X/DAY
     Route: 048
     Dates: start: 20130811, end: 20130905
  2. XALKORI [Suspect]
     Dosage: 250 MG, UNK
     Route: 048
     Dates: start: 20130913, end: 20130927
  3. ASAFLOW [Concomitant]
     Dosage: 80 MG, UNK
     Route: 048
  4. BRILIQUE [Concomitant]
     Dosage: 90 MG, UNK
     Route: 048
  5. LIPITOR [Concomitant]
     Dosage: 80 MG, UNK
     Route: 048
  6. PANTOMED [Concomitant]
     Dosage: 40 MG, UNK
     Route: 048
  7. TAZKO [Concomitant]
     Dosage: 5 MG /5 MG
     Route: 048
  8. SERETIDE [Concomitant]
     Dosage: 50/500 UG
     Route: 055

REACTIONS (9)
  - Neutropenia [Recovered/Resolved]
  - Respiratory tract infection [Recovered/Resolved]
  - Renal failure acute [Recovered/Resolved]
  - Confusional state [Recovered/Resolved]
  - Pyrexia [Recovered/Resolved]
  - Neutropenia [Recovered/Resolved]
  - Leukopenia [Unknown]
  - Disease progression [Not Recovered/Not Resolved]
  - Lung neoplasm malignant [Not Recovered/Not Resolved]
